FAERS Safety Report 8457098 (Version 2)
Quarter: 2015Q2

REPORT INFORMATION
  Report Type: Spontaneous
  Country: US (occurrence: US)
  Receive Date: 20120313
  Receipt Date: 20150421
  Transmission Date: 20150821
  Serious: Yes (Other)
  Sender: FDA-Public Use
  Company Number: US-ROCHE-794289

PATIENT
  Sex: Female
  Weight: 61.29 kg

DRUGS (1)
  1. ACCUTANE [Suspect]
     Active Substance: ISOTRETINOIN
     Indication: ACNE
     Route: 065
     Dates: start: 1993, end: 1996

REACTIONS (5)
  - Irritable bowel syndrome [Unknown]
  - Inflammatory bowel disease [Unknown]
  - Insomnia [Unknown]
  - Blood cholesterol increased [Unknown]
  - Panic attack [Unknown]

NARRATIVE: CASE EVENT DATE: 1999
